FAERS Safety Report 24462655 (Version 1)
Quarter: 2024Q4

REPORT INFORMATION
  Report Type: Spontaneous
  Country: US (occurrence: US)
  Receive Date: 20241018
  Receipt Date: 20241018
  Transmission Date: 20250114
  Serious: No
  Sender: MERCK
  Company Number: US-009507513-2410USA003500

PATIENT

DRUGS (1)
  1. MOLNUPIRAVIR [Suspect]
     Active Substance: MOLNUPIRAVIR
     Indication: COVID-19
     Dosage: 4 DOSAGE FORM, QD
     Route: 048

REACTIONS (3)
  - Drug effective for unapproved indication [Unknown]
  - Product prescribing issue [Unknown]
  - No adverse event [Unknown]
